FAERS Safety Report 8114833-1 (Version None)
Quarter: 2012Q1

REPORT INFORMATION
  Report Type: 
  Country: None (occurrence: None)
  Receive Date: 20120202
  Receipt Date: 20120202
  Transmission Date: 20120608
  Serious: Yes (Life-Threatening, Hospitalization, Other)
  Sender: FDA-Public Use
  Company Number: None

PATIENT
  Sex: Female
  Weight: 78.0187 kg

DRUGS (2)
  1. KEFLEX [Suspect]
     Indication: LOCALISED INFECTION
     Dosage: 4X A DAY EVERY 6 HOURS PILL
     Dates: start: 20111213, end: 20111214
  2. KEFLEX [Suspect]
     Indication: LYMPHADENOPATHY
     Dosage: 4X A DAY EVERY 6 HOURS PILL
     Dates: start: 20111213, end: 20111214

REACTIONS (4)
  - HEART RATE ABNORMAL [None]
  - VISION BLURRED [None]
  - HEADACHE [None]
  - EYE DISORDER [None]
